FAERS Safety Report 9435450 (Version 1)
Quarter: 2013Q3

REPORT INFORMATION
  Report Type: Spontaneous
  Country: US (occurrence: US)
  Receive Date: 20130801
  Receipt Date: 20130801
  Transmission Date: 20140515
  Serious: Yes (Other)
  Sender: FDA-Public Use
  Company Number: US-GLAXOSMITHKLINE-B0912310A

PATIENT
  Age: 56 Year
  Sex: Female

DRUGS (3)
  1. MELPHALAN [Suspect]
     Indication: AMYLOIDOSIS
     Route: 065
  2. DEXAMETHASONE [Suspect]
     Indication: AMYLOIDOSIS
  3. VELCADE [Suspect]
     Indication: AMYLOIDOSIS

REACTIONS (1)
  - Refractory cytopenia with unilineage dysplasia [Unknown]
